FAERS Safety Report 9138727 (Version 1)
Quarter: 2013Q1

REPORT INFORMATION
  Report Type: Spontaneous
  Country: US (occurrence: US)
  Receive Date: 20130305
  Receipt Date: 20130305
  Transmission Date: 20140127
  Serious: Yes (Other)
  Sender: FDA-Public Use
  Company Number: US-ENDO PHARMACEUTICALS INC.-PERC20120126

PATIENT
  Sex: Male
  Weight: 118.04 kg

DRUGS (16)
  1. PERCOCET [Suspect]
     Indication: PAIN
     Dosage: UNK
     Route: 048
     Dates: start: 2012
  2. SOTALOL HYDROCHLORIDE TABLETS 160MG [Concomitant]
     Route: 065
  3. METFORMIN HYDROCHLORIDE TABLETS 1000MG [Concomitant]
  4. ALDACTONE [Concomitant]
  5. ASPIRIN [Concomitant]
  6. DIGOXIN [Concomitant]
  7. LASIX [Concomitant]
  8. COUMADIN [Concomitant]
  9. TRILEX [Concomitant]
  10. SIMVASTATIN [Concomitant]
  11. NEURONTIN [Concomitant]
  12. DRISDOL [Concomitant]
  13. MULTIVITAMIN [Concomitant]
  14. CO-Q10 [Concomitant]
  15. FISH OIL [Concomitant]
  16. ADVAIR [Concomitant]

REACTIONS (1)
  - Intentional drug misuse [Unknown]
